FAERS Safety Report 23792355 (Version 6)
Quarter: 2025Q1

REPORT INFORMATION
  Report Type: Report from Study
  Country: CA (occurrence: CA)
  Receive Date: 20240429
  Receipt Date: 20250128
  Transmission Date: 20250408
  Serious: Yes (Other)
  Sender: TAKEDA
  Company Number: CA-TAKEDA-2023TUS043719

PATIENT
  Age: 64 Year
  Sex: Male

DRUGS (3)
  1. VEDOLIZUMAB [Suspect]
     Active Substance: VEDOLIZUMAB
     Indication: Colitis ulcerative
  2. VEDOLIZUMAB [Suspect]
     Active Substance: VEDOLIZUMAB
     Dosage: 300 MILLIGRAM, Q4WEEKS
     Dates: start: 20240622
  3. Cortiment [Concomitant]

REACTIONS (10)
  - Colitis ulcerative [Unknown]
  - Haematochezia [Unknown]
  - Impaired work ability [Unknown]
  - Loss of therapeutic response [Unknown]
  - Large intestine polyp [Unknown]
  - Off label use [Unknown]
  - Diarrhoea [Unknown]
  - Insomnia [Unknown]
  - Social problem [Unknown]
  - Arthralgia [Unknown]

NARRATIVE: CASE EVENT DATE: 20240622
